FAERS Safety Report 5407717-0 (Version None)
Quarter: 2007Q3

REPORT INFORMATION
  Report Type: 
  Country: None (occurrence: None)
  Receive Date: 20070803
  Receipt Date: 20070712
  Transmission Date: 20080115
  Serious: Yes (Hospitalization)
  Sender: FDA-Public Use
  Company Number: 6035629

PATIENT
  Age: 52 Year
  Sex: Male

DRUGS (3)
  1. METFORMIN HCL [Suspect]
     Indication: DIABETES MELLITUS
     Dosage: 850 MG (850 MG, 1 IN 1 D), ORAL
     Route: 048
  2. ACETYLSALICYLIC ACID SRT [Concomitant]
  3. VERAPAMIL [Concomitant]

REACTIONS (17)
  - ASTHENIA [None]
  - BLOOD CHLORIDE DECREASED [None]
  - BLOOD CREATININE INCREASED [None]
  - BLOOD SODIUM DECREASED [None]
  - BLOOD UREA INCREASED [None]
  - BODY TEMPERATURE DECREASED [None]
  - CARDIOMEGALY [None]
  - EXERCISE TOLERANCE DECREASED [None]
  - HEPATOTOXICITY [None]
  - HYPERKALAEMIA [None]
  - LACTIC ACIDOSIS [None]
  - NAUSEA [None]
  - PROTEIN URINE PRESENT [None]
  - PYREXIA [None]
  - RESPIRATORY RATE INCREASED [None]
  - SEPSIS [None]
  - VOMITING [None]
